FAERS Safety Report 7927676-6 (Version None)
Quarter: 2011Q4

REPORT INFORMATION
  Report Type: 
  Country: None (occurrence: None)
  Receive Date: 20111116
  Receipt Date: 20111103
  Transmission Date: 20120403
  Serious: Yes (Hospitalization)
  Sender: FDA-Public Use
  Company Number: DSJ-2011-23929

PATIENT
  Age: 59 Year
  Sex: Male

DRUGS (2)
  1. BENICAR HCT [Suspect]
     Indication: HYPERTENSION
     Dosage: 20/12.5 MG (1 IN 1 D),PER ORAL
     Route: 048
     Dates: start: 20080101, end: 20111101
  2. ATENOLOL [Concomitant]

REACTIONS (1)
  - CAROTID ARTERIOSCLEROSIS [None]
